FAERS Safety Report 18353875 (Version 1)
Quarter: 2020Q4

REPORT INFORMATION
  Report Type: Spontaneous
  Country: FR (occurrence: FR)
  Receive Date: 20201006
  Receipt Date: 20201006
  Transmission Date: 20210114
  Serious: Yes (Other)
  Sender: FDA-Public Use
  Company Number: FR-ROCHE-2687765

PATIENT
  Age: 81 Year
  Sex: Female
  Weight: 78 kg

DRUGS (5)
  1. FLECAINE [Concomitant]
     Active Substance: FLECAINIDE
  2. XARELTO [Concomitant]
     Active Substance: RIVAROXABAN
  3. GAZYVARO [Suspect]
     Active Substance: OBINUTUZUMAB
     Indication: MANTLE CELL LYMPHOMA
     Dosage: D1 ON 08/15/2020: 100MG THEN D2 ON 08/16/2020: 900MG
     Route: 041
     Dates: start: 20200815, end: 20200816
  4. NEBIVOLOL. [Concomitant]
     Active Substance: NEBIVOLOL
  5. NISISCO [Concomitant]
     Active Substance: HYDROCHLOROTHIAZIDE\VALSARTAN

REACTIONS (1)
  - Hepatocellular injury [Recovering/Resolving]

NARRATIVE: CASE EVENT DATE: 20200816
